FAERS Safety Report 5058006-8 (Version None)
Quarter: 2006Q3

REPORT INFORMATION
  Report Type: 
  Country: None (occurrence: None)
  Receive Date: 20060721
  Receipt Date: 20060510
  Transmission Date: 20061208
  Serious: No
  Sender: FDA-Public Use
  Company Number: US-GLAXOSMITHKLINE-A0605083A

PATIENT
  Sex: Female

DRUGS (5)
  1. AVANDIA [Suspect]
     Route: 048
  2. CYMBALTA [Concomitant]
  3. CELEBREX [Concomitant]
  4. QUINAPRIL [Concomitant]
  5. METFORMIN [Concomitant]

REACTIONS (2)
  - STOMACH DISCOMFORT [None]
  - SWELLING [None]
